FAERS Safety Report 21659728 (Version 5)
Quarter: 2023Q2

REPORT INFORMATION
  Report Type: Report from Study
  Country: US (occurrence: US)
  Receive Date: 20221129
  Receipt Date: 20230411
  Transmission Date: 20230722
  Serious: Yes (Life-Threatening, Hospitalization, Other)
  Sender: FDA-Public Use
  Company Number: US-ABBVIE-22K-163-4304968-00

PATIENT
  Sex: Male

DRUGS (6)
  1. IMBRUVICA [Suspect]
     Active Substance: IBRUTINIB
     Indication: Chronic lymphocytic leukaemia
     Route: 048
     Dates: start: 20220916
  2. IMBRUVICA [Suspect]
     Active Substance: IBRUTINIB
     Indication: Chronic lymphocytic leukaemia
     Route: 048
     Dates: start: 20220609, end: 20220916
  3. IMBRUVICA [Suspect]
     Active Substance: IBRUTINIB
     Indication: Chronic lymphocytic leukaemia
     Route: 048
     Dates: start: 20200116, end: 20220609
  4. IMBRUVICA [Suspect]
     Active Substance: IBRUTINIB
     Indication: Chronic lymphocytic leukaemia
     Route: 048
     Dates: start: 20200116
  5. IMBRUVICA [Suspect]
     Active Substance: IBRUTINIB
     Indication: Chronic lymphocytic leukaemia
     Route: 048
     Dates: start: 20220609, end: 20220916
  6. IMBRUVICA [Suspect]
     Active Substance: IBRUTINIB
     Indication: Chronic lymphocytic leukaemia
     Route: 048
     Dates: start: 20200116, end: 20220609

REACTIONS (25)
  - COVID-19 [Unknown]
  - Cataract [Unknown]
  - Illness [Unknown]
  - Fall [Unknown]
  - Gastrointestinal pain [Unknown]
  - Sepsis [Unknown]
  - Mental impairment [Unknown]
  - Blister [Unknown]
  - Pain [Unknown]
  - Ureteral stent insertion [Unknown]
  - Hallucination [Unknown]
  - Diplopia [Unknown]
  - Renal function test abnormal [Unknown]
  - Urosepsis [Unknown]
  - Prostatomegaly [Unknown]
  - Renal failure [Unknown]
  - Pollakiuria [Unknown]
  - Poisoning [Unknown]
  - Fall [Unknown]
  - Asthenia [Unknown]
  - Memory impairment [Unknown]
  - Skin exfoliation [Unknown]
  - Adverse drug reaction [Unknown]
  - Dysstasia [Unknown]
  - Urinary tract infection [Unknown]
